FAERS Safety Report 4743476-2 (Version None)
Quarter: 2005Q3

REPORT INFORMATION
  Report Type: 
  Country: None (occurrence: None)
  Receive Date: 20050809
  Receipt Date: 20050729
  Transmission Date: 20060218
  Serious: Yes (Death, Life-Threatening, Hospitalization)
  Sender: FDA-Public Use
  Company Number: HQWYE827120MAY05

PATIENT
  Age: 66 Year
  Sex: Male

DRUGS (20)
  1. PANTOPRAZOLE SODIUM [Suspect]
     Dosage: 40 MG - ^SOME TIME(S) SOME DF^, ORAL
     Route: 048
     Dates: start: 20050310, end: 20050326
  2. ATARAX [Suspect]
     Dosage: 1 DOSAGE FORM 1X PER 1 DAY,ORAL
     Route: 048
     Dates: start: 20050310, end: 20050326
  3. AUGMENTIN [Suspect]
     Indication: RESPIRATORY DISORDER
     Dosage: SEE IMAGE
     Route: 048
     Dates: end: 20050301
  4. AUGMENTIN [Suspect]
     Indication: RESPIRATORY DISORDER
     Dosage: SEE IMAGE
     Route: 048
     Dates: start: 20050308, end: 20050321
  5. EFFERALGAN (PARACETAMOL, ) [Suspect]
     Dosage: ^SOME TIME (S) SOME DF^
     Dates: start: 20050223
  6. IOPAMIRON (IOPAMIDOL) [Suspect]
     Indication: DIAGNOSTIC PROCEDURE
     Dosage: SEE IMAGE
     Route: 042
     Dates: start: 20050223, end: 20050223
  7. IOPAMIRON (IOPAMIDOL) [Suspect]
     Indication: DIAGNOSTIC PROCEDURE
     Dosage: SEE IMAGE
     Route: 042
     Dates: start: 20050322, end: 20050322
  8. MICROPAGUE ^GUERBET^ (BARIUM SULFATE, ) [Suspect]
     Indication: DIAGNOSTIC PROCEDURE
     Dosage: ^SOME DF 1 TIME (S) PER DAY^, ORAL
     Route: 048
     Dates: start: 20050322, end: 20050322
  9. OFLOXACIN [Suspect]
     Indication: RESPIRATORY DISORDER
     Dosage: ''SOME TIME (S) SOME DF^, ORAL
     Route: 048
     Dates: start: 20050310, end: 20050321
  10. PRAVASTATIN [Concomitant]
  11. COVERSYL (PERINDOPRIL) [Concomitant]
  12. FORLAX (MACROGOL) [Concomitant]
  13. EDUCTYL (POTASSIUM BITARTRATE/SODIUM BICARBONATE) [Concomitant]
  14. DUROGESIC (FENTANYL) [Concomitant]
  15. LOVENOX (HEPARIN-FRACTIO, SODIUM SALT) [Concomitant]
  16. CORTANCYL (PREDNISONE) [Concomitant]
  17. MORPHINE SULFATE [Concomitant]
  18. NUTRISON (CARBOHYDRATES NOS/LIPIDS NOS/PROTEINS NOS) [Concomitant]
  19. ALLOPURINOL [Concomitant]
  20. CLAVULANATE POTASSIUM (CLAVULANATE POTASSIUM) [Concomitant]

REACTIONS (19)
  - ATRIAL FIBRILLATION [None]
  - BONE EROSION [None]
  - CARDIAC FAILURE [None]
  - COAGULATION TIME SHORTENED [None]
  - GENERAL PHYSICAL HEALTH DETERIORATION [None]
  - HAEMOGLOBIN DECREASED [None]
  - HEPARIN-INDUCED THROMBOCYTOPENIA [None]
  - LUNG INFECTION [None]
  - OESOPHAGEAL CARCINOMA [None]
  - PALATAL DISORDER [None]
  - PH BODY FLUID INCREASED [None]
  - PLATELET COUNT INCREASED [None]
  - PLEURAL EFFUSION [None]
  - PULMONARY CONGESTION [None]
  - PULMONARY OEDEMA [None]
  - SEPTIC SHOCK [None]
  - TOXIC EPIDERMAL NECROLYSIS [None]
  - TOXIC SKIN ERUPTION [None]
  - TROPONIN T INCREASED [None]
